FAERS Safety Report 23312322 (Version 2)
Quarter: 2024Q4

REPORT INFORMATION
  Report Type: Spontaneous
  Country: AU (occurrence: AU)
  Receive Date: 20231219
  Receipt Date: 20241114
  Transmission Date: 20250114
  Serious: Yes (Hospitalization, Other)
  Sender: PFIZER
  Company Number: AU-PFIZER INC-950417-SS585

PATIENT
  Age: 30 Year
  Sex: Male

DRUGS (4)
  1. METRONIDAZOLE [Suspect]
     Active Substance: METRONIDAZOLE
     Indication: Hepatic amoebiasis
     Dosage: 500 MG, 3X/DAY
     Route: 042
     Dates: start: 199106, end: 199106
  2. METRONIDAZOLE [Suspect]
     Active Substance: METRONIDAZOLE
     Dosage: 500 MG, 3X/DAY
     Route: 042
     Dates: start: 199201, end: 199201
  3. AMPICILLIN [Concomitant]
     Active Substance: AMPICILLIN
     Dosage: UNK
     Dates: start: 199106, end: 199106
  4. GENTAMICIN [Concomitant]
     Active Substance: GENTAMICIN
     Dosage: UNK
     Dates: start: 199106, end: 199106

REACTIONS (2)
  - Therapeutic product effect incomplete [Unknown]
  - Neurotoxicity [Recovered/Resolved with Sequelae]

NARRATIVE: CASE EVENT DATE: 19910601
